APPROVED DRUG PRODUCT: MOMETASONE FUROATE
Active Ingredient: MOMETASONE FUROATE
Strength: 0.1%
Dosage Form/Route: OINTMENT;TOPICAL
Application: A076624 | Product #001
Applicant: SUN PHARMA CANADA INC
Approved: Dec 3, 2004 | RLD: No | RS: No | Type: DISCN